FAERS Safety Report 19481759 (Version 1)
Quarter: 2021Q3

REPORT INFORMATION
  Report Type: Spontaneous
  Country: JP (occurrence: JP)
  Receive Date: 20210701
  Receipt Date: 20210701
  Transmission Date: 20211014
  Serious: Yes (Hospitalization)
  Sender: FDA-Public Use
  Company Number: JP-EISAI MEDICAL RESEARCH-EC-2021-095228

PATIENT
  Age: 66 Year
  Sex: Female

DRUGS (6)
  1. ERIBULIN [Suspect]
     Active Substance: ERIBULIN
     Indication: TRIPLE NEGATIVE BREAST CANCER
     Dosage: DOSE UNKNOWN
     Route: 041
  2. ERIBULIN [Suspect]
     Active Substance: ERIBULIN
     Dosage: DOSE UNKNOWN
     Route: 041
  3. PREDNISOLONE. [Concomitant]
     Active Substance: PREDNISOLONE
     Route: 065
  4. PREDNISOLONE. [Concomitant]
     Active Substance: PREDNISOLONE
     Route: 065
  5. ATEZOLIZUMAB(GENETICAL RECOMBINATION) [Suspect]
     Active Substance: ATEZOLIZUMAB
     Indication: TRIPLE NEGATIVE BREAST CANCER
     Dosage: DOSE AND FREQUENCY UNKNOWN
     Route: 065
  6. PREDNISOLONE. [Concomitant]
     Active Substance: PREDNISOLONE
     Indication: COLITIS
     Route: 065

REACTIONS (4)
  - Diarrhoea [Recovering/Resolving]
  - Tubulointerstitial nephritis [Recovering/Resolving]
  - Altered state of consciousness [Recovering/Resolving]
  - Haematuria [Recovering/Resolving]
